FAERS Safety Report 13919384 (Version 2)
Quarter: 2017Q3

REPORT INFORMATION
  Report Type: Spontaneous
  Country: ES (occurrence: ES)
  Receive Date: 20170830
  Receipt Date: 20170928
  Transmission Date: 20171127
  Serious: Yes (Life-Threatening, Hospitalization, Disabling)
  Sender: FDA-Public Use
  Company Number: ES-ACCORD-057687

PATIENT
  Age: 13 Year
  Sex: Female
  Weight: 37.7 kg

DRUGS (3)
  1. IFOSFAMIDE. [Suspect]
     Active Substance: IFOSFAMIDE
     Indication: PRODUCT USED FOR UNKNOWN INDICATION
     Route: 042
     Dates: start: 20170725, end: 20170727
  2. ETOPOSIDE. [Suspect]
     Active Substance: ETOPOSIDE
     Indication: OSTEOSARCOMA
     Route: 042
     Dates: start: 20170725, end: 20170727
  3. LENVATINIB [Suspect]
     Active Substance: LENVATINIB
     Indication: PRODUCT USED FOR UNKNOWN INDICATION
     Dosage: 18 MG ONCE DAILY
     Route: 048
     Dates: start: 20170725, end: 20170802

REACTIONS (5)
  - Thrombocytopenia [Not Recovered/Not Resolved]
  - Leukopenia [Unknown]
  - Urinary tract infection [Not Recovered/Not Resolved]
  - Off label use [Unknown]
  - Mucosal inflammation [Unknown]

NARRATIVE: CASE EVENT DATE: 20170725
